FAERS Safety Report 5513310-1 (Version None)
Quarter: 2007Q4

REPORT INFORMATION
  Report Type: 
  Country: None (occurrence: None)
  Receive Date: 20071112
  Receipt Date: 20071031
  Transmission Date: 20080405
  Serious: Yes (Other)
  Sender: FDA-Public Use
  Company Number: US-PFIZER INC-2007092963

PATIENT
  Sex: Male
  Weight: 79.545 kg

DRUGS (5)
  1. CHANTIX [Suspect]
     Indication: SMOKING CESSATION THERAPY
     Route: 048
     Dates: start: 20071023, end: 20071027
  2. ZESTORETIC [Concomitant]
     Indication: HYPERTENSION
     Route: 048
  3. VITAMIN CAP [Concomitant]
     Route: 048
  4. ASPIRIN [Concomitant]
     Route: 048
  5. GLUCOSAMINE SULFATE [Concomitant]
     Route: 048

REACTIONS (4)
  - ABDOMINAL PAIN LOWER [None]
  - APHAGIA [None]
  - BLISTER [None]
  - MOUTH ULCERATION [None]
